FAERS Safety Report 25063779 (Version 1)
Quarter: 2025Q1

REPORT INFORMATION
  Report Type: Spontaneous
  Country: US (occurrence: None)
  Receive Date: 20250310
  Receipt Date: 20250310
  Transmission Date: 20250409
  Serious: Yes (Hospitalization)
  Sender: FDA-CTU
  Company Number: None

PATIENT
  Age: 76 Year
  Sex: Male
  Weight: 77 kg

DRUGS (2)
  1. APIXABAN [Suspect]
     Active Substance: APIXABAN
     Indication: Atrial fibrillation
     Dosage: FREQUENCY : TWICE A DAY;?
     Route: 048
  2. NAPROXEN [Suspect]
     Active Substance: NAPROXEN

REACTIONS (9)
  - Gastrointestinal haemorrhage [None]
  - Anaemia [None]
  - Treatment noncompliance [None]
  - Red blood cell transfusion [None]
  - Pericardial effusion [None]
  - Internal haemorrhage [None]
  - Gastritis [None]
  - Duodenitis [None]
  - Duodenal ulcer [None]

NARRATIVE: CASE EVENT DATE: 20241026
